FAERS Safety Report 10188630 (Version 1)
Quarter: 2014Q2

REPORT INFORMATION
  Report Type: Spontaneous
  Country: US (occurrence: US)
  Receive Date: 20140522
  Receipt Date: 20140522
  Transmission Date: 20141212
  Serious: No
  Sender: FDA-Public Use
  Company Number: US-SA-2014SA034816

PATIENT
  Age: 70 Year
  Sex: Female

DRUGS (2)
  1. SOLOSTAR [Suspect]
     Dates: start: 2009
  2. LANTUS SOLOSTAR [Suspect]
     Indication: PRODUCT USED FOR UNKNOWN INDICATION
     Dosage: DOSE:34 UNIT(S)
     Route: 065
     Dates: start: 2009

REACTIONS (7)
  - Blood pressure increased [Unknown]
  - Flank pain [Unknown]
  - Blood glucose increased [Unknown]
  - Visual impairment [Unknown]
  - Malaise [Unknown]
  - Thinking abnormal [Unknown]
  - Drug administration error [Unknown]
